FAERS Safety Report 19849458 (Version 1)
Quarter: 2021Q3

REPORT INFORMATION
  Report Type: Spontaneous
  Country: JP (occurrence: JP)
  Receive Date: 20210917
  Receipt Date: 20210917
  Transmission Date: 20211014
  Serious: Yes (Life-Threatening, Other)
  Sender: FDA-Public Use
  Company Number: JP-ASTRAZENECA-2021A728094

PATIENT
  Sex: Male

DRUGS (6)
  1. IMFINZI [Suspect]
     Active Substance: DURVALUMAB
     Indication: SMALL CELL LUNG CANCER
     Dosage: DOSE UNKNOWN
     Route: 041
  2. CISPLATIN. [Concomitant]
     Active Substance: CISPLATIN
     Indication: SMALL CELL LUNG CANCER
     Dosage: DOSE UNKNOWN
     Route: 065
  3. IMFINZI [Suspect]
     Active Substance: DURVALUMAB
     Indication: SMALL CELL LUNG CANCER
     Dosage: DOSE UNKNOWN
     Route: 041
  4. ETOPOSIDE. [Concomitant]
     Active Substance: ETOPOSIDE
     Indication: SMALL CELL LUNG CANCER
     Dosage: DOSE UNKNOWN UNKNOWN
     Route: 065
  5. CISPLATIN. [Concomitant]
     Active Substance: CISPLATIN
     Indication: SMALL CELL LUNG CANCER
     Dosage: DOSE UNKNOWN
     Route: 065
  6. ETOPOSIDE. [Concomitant]
     Active Substance: ETOPOSIDE
     Indication: SMALL CELL LUNG CANCER
     Dosage: ON DAY 1, 2 AND 3 OF EACH CYCLE100.0MG/M2 UNKNOWN
     Route: 065

REACTIONS (2)
  - Neutropenia [Unknown]
  - Febrile neutropenia [Unknown]
